FAERS Safety Report 21078613 (Version 1)
Quarter: 2022Q3

REPORT INFORMATION
  Report Type: Report from Study
  Country: MX (occurrence: None)
  Receive Date: 20220713
  Receipt Date: 20220713
  Transmission Date: 20221027
  Serious: Yes (Other)
  Sender: FDA-Public Use
  Company Number: 2022A251437

PATIENT
  Age: 20576 Day
  Sex: Female
  Weight: 94 kg

DRUGS (10)
  1. XIGDUO XR [Suspect]
     Active Substance: DAPAGLIFLOZIN PROPANEDIOL\METFORMIN HYDROCHLORIDE
     Indication: Glucose tolerance impaired
     Dosage: 10/1000 MG
     Route: 048
     Dates: start: 2021
  2. DAPAGLIFLOZIN [Suspect]
     Active Substance: DAPAGLIFLOZIN
     Indication: Glucose tolerance impaired
     Route: 048
  3. CORIATROS [Concomitant]
     Indication: Blood pressure abnormal
     Route: 065
  4. METFORMIN [Concomitant]
     Active Substance: METFORMIN HYDROCHLORIDE
     Indication: Thyroid disorder
     Route: 065
  5. ELIQUIS [Concomitant]
     Active Substance: APIXABAN
     Indication: Anticoagulant therapy
     Route: 065
  6. ELATEC [Concomitant]
     Indication: Dyspepsia
     Route: 065
  7. DULOXETINE [Concomitant]
     Active Substance: DULOXETINE
     Route: 065
     Dates: start: 2021
  8. ELPTIC OFTENO [Concomitant]
     Indication: Glaucoma
     Dosage: FOR 7 YEARS
     Route: 065
  9. LUMIGAN [Concomitant]
     Active Substance: BIMATOPROST
     Indication: Glaucoma
     Route: 065
  10. HYALURONATE SODIUM\TREHALOSE [Concomitant]
     Active Substance: HYALURONATE SODIUM\TREHALOSE
     Indication: Dry eye
     Route: 065

REACTIONS (9)
  - Endocarditis [Unknown]
  - COVID-19 [Recovering/Resolving]
  - Cough [Unknown]
  - Blood pressure abnormal [Unknown]
  - Pain in extremity [Unknown]
  - Body height decreased [Unknown]
  - Laziness [Not Recovered/Not Resolved]
  - Tendonitis [Unknown]
  - Rhinorrhoea [Unknown]

NARRATIVE: CASE EVENT DATE: 20220601
